FAERS Safety Report 15375006 (Version 1)
Quarter: 2018Q3

REPORT INFORMATION
  Report Type: Spontaneous
  Country: RO (occurrence: RO)
  Receive Date: 20180912
  Receipt Date: 20180912
  Transmission Date: 20181010
  Serious: Yes (Death)
  Sender: FDA-Public Use
  Company Number: RO-ASTRAZENECA-2018SF15411

PATIENT
  Sex: Male

DRUGS (2)
  1. BRILIQUE [Suspect]
     Active Substance: TICAGRELOR
     Dosage: 180.0MG UNKNOWN
     Route: 048
  2. ASA [Concomitant]
     Active Substance: ASPIRIN

REACTIONS (1)
  - Death [Fatal]
